FAERS Safety Report 6160791-9 (Version None)
Quarter: 2009Q2

REPORT INFORMATION
  Report Type: 
  Country: None (occurrence: None)
  Receive Date: 20090420
  Receipt Date: 20090416
  Transmission Date: 20091009
  Serious: Yes (Death)
  Sender: FDA-Public Use
  Company Number: PHHY2009DE14604

PATIENT
  Sex: Male

DRUGS (5)
  1. LEPONEX [Suspect]
     Indication: CONFUSIONAL STATE
     Dosage: 25 MG, ONCE/SINGLE
     Route: 048
     Dates: start: 20090313, end: 20090313
  2. LEPONEX [Interacting]
     Indication: AGGRESSION
  3. LEPONEX [Interacting]
     Indication: HALLUCINATION
  4. SOTAHEXAL [Interacting]
     Indication: ARRHYTHMIA
     Dosage: 80 MG, TID
     Route: 048
     Dates: end: 20090313
  5. NACOM [Concomitant]
     Indication: PARKINSON'S DISEASE
     Dosage: UNK
     Route: 048
     Dates: end: 20090312

REACTIONS (3)
  - CARDIAC FAILURE ACUTE [None]
  - DRUG INTERACTION [None]
  - SHOCK [None]
